FAERS Safety Report 7993087-0 (Version None)
Quarter: 2011Q4

REPORT INFORMATION
  Report Type: 
  Country: None (occurrence: None)
  Receive Date: 20111219
  Receipt Date: 20110601
  Transmission Date: 20120403
  Serious: No
  Sender: FDA-Public Use
  Company Number: US-ASTRAZENECA-2011SE33763

PATIENT
  Age: 66 Year
  Sex: Female

DRUGS (3)
  1. CRESTOR [Suspect]
     Route: 048
  2. DERMACERIN [Concomitant]
  3. CRESTOR [Suspect]
     Route: 048
     Dates: start: 20101001

REACTIONS (6)
  - SKIN DISCOLOURATION [None]
  - SKIN CHAPPED [None]
  - EYE PAIN [None]
  - SKIN BURNING SENSATION [None]
  - PERIORBITAL OEDEMA [None]
  - PERIORBITAL DISORDER [None]
